FAERS Safety Report 9930735 (Version 1)
Quarter: 2014Q1

REPORT INFORMATION
  Report Type: Spontaneous
  Country: US (occurrence: US)
  Receive Date: 20140227
  Receipt Date: 20140227
  Transmission Date: 20141002
  Serious: No
  Sender: FDA-Public Use
  Company Number: US-AMGEN-USASP2014000636

PATIENT
  Age: 51 Year
  Sex: Female
  Weight: 77.1 kg

DRUGS (7)
  1. ENBREL [Suspect]
     Indication: PSORIATIC ARTHROPATHY
     Dosage: UNK
     Route: 058
     Dates: end: 201206
  2. STELARA [Concomitant]
     Dosage: UNK
  3. ESTROGEN [Concomitant]
     Dosage: UNK
  4. SYNTHROID [Concomitant]
     Dosage: UNK
  5. VITAMIN D                          /00107901/ [Concomitant]
     Dosage: UNK
  6. CELEXA                             /01400501/ [Concomitant]
     Dosage: UNK
  7. NEXIUM                             /01479302/ [Concomitant]
     Dosage: UNK

REACTIONS (2)
  - Drug resistance [Unknown]
  - Drug effect decreased [Unknown]
